FAERS Safety Report 5030213-X (Version None)
Quarter: 2006Q2

REPORT INFORMATION
  Report Type: 
  Country: None (occurrence: None)
  Receive Date: 20060614
  Receipt Date: 20060605
  Transmission Date: 20061013
  Serious: Yes (Hospitalization)
  Sender: FDA-Public Use
  Company Number: HQWYE986206JUN06

PATIENT
  Age: 20 Year
  Sex: Female
  Weight: 66 kg

DRUGS (7)
  1. CYCLOSPORINE [Suspect]
     Indication: PROPHYLAXIS AGAINST TRANSPLANT REJECTION
     Dosage: 100 + 75 MG 2X PER 1 DAY, ORAL - SEE IMAGE
     Route: 048
     Dates: start: 20050911
  2. CELLCEPT [Suspect]
     Indication: PROPHYLAXIS AGAINST TRANSPLANT REJECTION
     Dosage: 1000 MG 2X PER 1 DAY, ORAL
     Route: 048
  3. PREDNISONE TAB [Suspect]
     Indication: PROPHYLAXIS AGAINST TRANSPLANT REJECTION
     Dosage: 10 MG 1X PER 1 DAY, ORAL
     Route: 048
  4. YASMIN [Concomitant]
  5. TOPROL-XL [Concomitant]
  6. POTASSIUM CHLORIDE [Concomitant]
  7. PHENERGAN (PROMETHAZINE HYDROCHLORIDE) [Concomitant]

REACTIONS (11)
  - BLOOD CREATININE INCREASED [None]
  - BLOOD UREA INCREASED [None]
  - CONDITION AGGRAVATED [None]
  - HEART RATE INCREASED [None]
  - KLEBSIELLA INFECTION [None]
  - MIGRAINE [None]
  - PYREXIA [None]
  - RESPIRATORY RATE INCREASED [None]
  - URINARY TRACT INFECTION BACTERIAL [None]
  - URINE KETONE BODY PRESENT [None]
  - WHITE BLOOD CELL COUNT INCREASED [None]
